FAERS Safety Report 8810175 (Version 1)
Quarter: 2012Q4

REPORT INFORMATION
  Report Type: 
  Country: US (occurrence: US)
  Receive Date: 20120926
  Receipt Date: 20120926
  Transmission Date: 20130627
  Serious: Yes (Other)
  Sender: FDA-Public Use
  Company Number: PHEH2012US018442

PATIENT
  Sex: Male

DRUGS (8)
  1. ZOMETA [Suspect]
  2. REVLIMID [Suspect]
     Indication: MULTIPLE MYELOMA
     Dosage: 10 mg, daily (28 day cycle)
     Route: 048
     Dates: start: 20111025
  3. AVODART [Concomitant]
  4. CALCIUM W/VITAMIN D NOS [Concomitant]
  5. COUMADIN [Concomitant]
  6. DECADRON [Concomitant]
  7. DOXAZOSIN [Concomitant]
  8. LASIX [Concomitant]

REACTIONS (4)
  - Osteonecrosis of jaw [Not Recovered/Not Resolved]
  - Gingival pain [Unknown]
  - Platelet count decreased [Unknown]
  - Thrombocytopenia [Unknown]
